FAERS Safety Report 8472629-5 (Version None)
Quarter: 2012Q2

REPORT INFORMATION
  Report Type: 
  Country: None (occurrence: None)
  Receive Date: 20120627
  Receipt Date: 20120410
  Transmission Date: 20120825
  Serious: No
  Sender: FDA-Public Use
  Company Number: US-AMGEN-USASP2012022788

PATIENT
  Age: 67 Year
  Sex: Female

DRUGS (5)
  1. EPOGEN [Suspect]
     Dosage: 2800 IU, UNK
  2. EPOGEN [Suspect]
     Dosage: 10000 IU, UNK
  3. EPOGEN [Suspect]
     Dosage: 20000 IU, UNK
  4. IRON [Concomitant]
     Dosage: UNK
  5. EPOGEN [Suspect]
     Indication: RENAL FAILURE CHRONIC
     Dosage: 5200 IU, 3 TIMES/WK
     Dates: start: 20070301

REACTIONS (6)
  - THROMBOSIS IN DEVICE [None]
  - FATIGUE [None]
  - CONTUSION [None]
  - CONFUSIONAL STATE [None]
  - QUALITY OF LIFE DECREASED [None]
  - FALL [None]
